FAERS Safety Report 9387142 (Version 4)
Quarter: 2014Q1

REPORT INFORMATION
  Report Type: Report from Study
  Country: JP (occurrence: JP)
  Receive Date: 20130708
  Receipt Date: 20140319
  Transmission Date: 20141002
  Serious: Yes (Other)
  Sender: FDA-Public Use
  Company Number: JP-ROCHE-1246017

PATIENT
  Age: 78 Year
  Sex: Male

DRUGS (3)
  1. RANIBIZUMAB [Suspect]
     Indication: AGE-RELATED MACULAR DEGENERATION
     Dosage: LEFT EYE
     Route: 050
     Dates: start: 20110908, end: 20110908
  2. RANIBIZUMAB [Suspect]
     Route: 050
     Dates: start: 20111020, end: 20111020
  3. VIGAMOX [Concomitant]
     Route: 065
     Dates: start: 201109, end: 201110

REACTIONS (2)
  - Retinal haemorrhage [Recovered/Resolved]
  - Visual acuity reduced [Recovered/Resolved]
